FAERS Safety Report 7688151-X (Version None)
Quarter: 2011Q3

REPORT INFORMATION
  Report Type: 
  Country: None (occurrence: None)
  Receive Date: 20110817
  Receipt Date: 20110810
  Transmission Date: 20111222
  Serious: Yes (Hospitalization)
  Sender: FDA-Public Use
  Company Number: JP-ABBOTT-11P-087-0835105-00

PATIENT
  Sex: Female
  Weight: 50.2 kg

DRUGS (10)
  1. TRANEXAMIC ACID [Suspect]
     Indication: NASOPHARYNGITIS
     Route: 048
     Dates: start: 20110607, end: 20110608
  2. LOXONIN [Suspect]
     Indication: PHARYNGITIS
     Route: 048
     Dates: start: 20110609, end: 20110617
  3. AMOXICILLIN [Suspect]
     Indication: PHARYNGITIS
     Route: 048
     Dates: start: 20110609, end: 20110615
  4. CLARITHROMYCIN [Suspect]
     Indication: PHARYNGITIS
     Route: 048
     Dates: start: 20110609, end: 20110617
  5. GARENOXACIN MESYLATE [Suspect]
     Indication: NASOPHARYNGITIS
     Route: 048
     Dates: start: 20110607, end: 20110608
  6. REBAMIPIDE [Suspect]
     Indication: NASOPHARYNGITIS
     Route: 048
     Dates: start: 20110607, end: 20110608
  7. SELBEX [Suspect]
     Indication: PHARYNGITIS
     Route: 048
     Dates: start: 20110609, end: 20110617
  8. MUCODYNE [Suspect]
     Indication: PHARYNGITIS
     Route: 048
     Dates: start: 20110609, end: 20110617
  9. PREDNISOLONE [Suspect]
     Indication: PHARYNGITIS
     Route: 048
     Dates: start: 20110609, end: 20110617
  10. BIOFERMIN [Concomitant]
     Indication: PHARYNGITIS
     Dates: start: 20110609, end: 20110617

REACTIONS (1)
  - TOXIC SKIN ERUPTION [None]
